FAERS Safety Report 4473117-3 (Version None)
Quarter: 2004Q4

REPORT INFORMATION
  Report Type: 
  Country: None (occurrence: None)
  Receive Date: 20041008
  Receipt Date: 20041001
  Transmission Date: 20050328
  Serious: Yes (Death, Hospitalization)
  Sender: FDA-Public Use
  Company Number: BR-2004-032837

PATIENT
  Age: 55 Year
  Sex: Male

DRUGS (1)
  1. BETAFERON(INTERFERON BETA - 1B) INJECTION, 250UG [Suspect]
     Indication: MULTIPLE SCLEROSIS
     Dosage: 8 MIU, EVERY 2D, SUBCUTANEOUS
     Route: 058
     Dates: start: 19900101, end: 20040812

REACTIONS (3)
  - INFECTION [None]
  - PNEUMONIA [None]
  - URINARY TRACT INFECTION [None]
